FAERS Safety Report 5495898-2 (Version None)
Quarter: 2007Q4

REPORT INFORMATION
  Report Type: 
  Country: None (occurrence: None)
  Receive Date: 20071025
  Receipt Date: 20061129
  Transmission Date: 20080405
  Serious: No
  Sender: FDA-Public Use
  Company Number: A0626890A

PATIENT
  Age: 50 Year
  Sex: Female
  Weight: 59.1 kg

DRUGS (2)
  1. ADVAIR DISKUS 100/50 [Suspect]
     Indication: ASTHMA
     Route: 055
     Dates: start: 20030101
  2. CALCIUM [Concomitant]
     Dosage: 1000MG PER DAY
     Route: 048

REACTIONS (2)
  - OSTEOPENIA [None]
  - OSTEOPOROSIS [None]
